FAERS Safety Report 16172796 (Version 1)
Quarter: 2019Q2

REPORT INFORMATION
  Report Type: Spontaneous
  Country: DE (occurrence: DE)
  Receive Date: 20190409
  Receipt Date: 20190409
  Transmission Date: 20190711
  Serious: Yes (Hospitalization, Disabling, Other)
  Sender: FDA-Public Use
  Company Number: DE-009507513-1904DEU002045

PATIENT
  Age: 58 Year
  Sex: Male

DRUGS (37)
  1. TORSEMIDE. [Suspect]
     Active Substance: TORSEMIDE
     Dosage: UNK
     Dates: start: 201505, end: 2017
  2. METOPROLOL Z 1A PHARMA [Suspect]
     Active Substance: METOPROLOL
     Dosage: UNK
     Dates: start: 201302, end: 2014
  3. OLMESARTAN MEDOXOMIL. [Suspect]
     Active Substance: OLMESARTAN MEDOXOMIL
     Dosage: UNK
     Dates: start: 201402, end: 2014
  4. MOXONIDIN AL [Suspect]
     Active Substance: MOXONIDINE
     Dosage: UNK
     Dates: start: 201603, end: 2016
  5. TORSEMIDE. [Suspect]
     Active Substance: TORSEMIDE
     Dosage: UNK
     Dates: start: 201405, end: 2014
  6. TILIDIN COMP [Suspect]
     Active Substance: NALOXONE HYDROCHLORIDE\TILIDINE HYDROCHLORIDE
     Dosage: UNK
     Dates: start: 201409, end: 2016
  7. ALLOPURINOL. [Suspect]
     Active Substance: ALLOPURINOL
     Dosage: UNK
     Dates: start: 201512, end: 2017
  8. MOMETAHEXAL [Suspect]
     Active Substance: MOMETASONE
     Dosage: UNK
     Dates: start: 201610, end: 2016
  9. VALSARTAN. [Suspect]
     Active Substance: VALSARTAN
     Dosage: UNK
     Dates: start: 201501, end: 2017
  10. AMOXILLIN [Suspect]
     Active Substance: AMOXICILLIN
     Dosage: UNK
     Dates: start: 201402, end: 2014
  11. OMEPRAZOLE. [Suspect]
     Active Substance: OMEPRAZOLE
     Dosage: UNK
     Dates: start: 201307, end: 2013
  12. NOVAMINSULFON [Suspect]
     Active Substance: METAMIZOLE
     Dosage: UNK
     Dates: start: 201309, end: 2017
  13. OLMESARTAN MEDOXOMIL (+) AMLODIPINE BESYLATE (+) HYDROCHLOROTHIAZIDE [Suspect]
     Active Substance: AMLODIPINE BESYLATE\HYDROCHLOROTHIAZIDE\OLMESARTAN MEDOXOMIL
     Dosage: UNK
     Dates: start: 201202, end: 2013
  14. ALLOPURINOL HEUMANN [Suspect]
     Active Substance: ALLOPURINOL
     Dosage: UNK
     Dates: start: 201411, end: 2015
  15. DOXYCYCLINE. [Suspect]
     Active Substance: DOXYCYCLINE
     Dosage: UNK
     Dates: start: 201205, end: 2012
  16. CANDECOR [Suspect]
     Active Substance: CANDESARTAN CILEXETIL
     Dosage: UNK
     Dates: start: 201409, end: 2014
  17. ALLOPURINOL. [Suspect]
     Active Substance: ALLOPURINOL
     Dosage: UNK
     Dates: start: 201307, end: 2016
  18. MOXONIDINE [Suspect]
     Active Substance: MOXONIDINE
     Dosage: UNK
     Dates: start: 201311, end: 2015
  19. PANTOPRAZOLE [Suspect]
     Active Substance: PANTOPRAZOLE
     Dosage: UNK
     Dates: start: 201601, end: 2016
  20. METAMIZOL HEXAL [Suspect]
     Active Substance: METAMIZOLE SODIUM
     Dosage: UNK
     Dates: start: 201309, end: 2017
  21. PREDNISOLON AL [Suspect]
     Active Substance: PREDNISOLONE
     Dosage: UNK
     Dates: start: 201309, end: 2013
  22. NASONEX [Suspect]
     Active Substance: MOMETASONE FUROATE
     Dosage: UNK
     Route: 045
     Dates: start: 201205, end: 2013
  23. IBUFLAM LICHTENSTEIN [Suspect]
     Active Substance: IBUPROFEN
     Dosage: UNK
     Dates: start: 201304, end: 2016
  24. TORSEMIDE. [Suspect]
     Active Substance: TORSEMIDE
     Dosage: UNK
     Dates: start: 201409, end: 2014
  25. CELECOXIB. [Suspect]
     Active Substance: CELECOXIB
     Dosage: UNK
     Dates: start: 201501, end: 2016
  26. OLMESARTAN MEDOXOMIL. [Suspect]
     Active Substance: OLMESARTAN MEDOXOMIL
     Dosage: UNK
     Dates: start: 201311, end: 2014
  27. ALLOPURINOL HEUMANN [Suspect]
     Active Substance: ALLOPURINOL
     Dosage: UNK
     Dates: start: 201311, end: 2014
  28. ALLOPURINOL. [Suspect]
     Active Substance: ALLOPURINOL
     Dosage: UNK
     Dates: start: 201303, end: 2016
  29. AMOXILLIN [Suspect]
     Active Substance: AMOXICILLIN
     Dosage: UNK
     Dates: start: 201305, end: 2013
  30. MOXONIDINE [Suspect]
     Active Substance: MOXONIDINE
     Dosage: UNK
     Dates: start: 201509, end: 2017
  31. PREDNISOLONE. [Suspect]
     Active Substance: PREDNISOLONE
     Dosage: UNK
     Dates: start: 201311, end: 2013
  32. DEXAGENT OPHTAL EYE OINTMENT [Suspect]
     Active Substance: DEXAMETHASONE\GENTAMICIN SULFATE
     Dosage: UNK
     Dates: start: 201212, end: 2013
  33. IBU [Suspect]
     Active Substance: IBUPROFEN
     Dosage: UNK
     Dates: start: 201602, end: 2017
  34. METOPROLOL Z 1A PHARMA [Suspect]
     Active Substance: METOPROLOL
     Dosage: UNK
     Dates: start: 201202, end: 2013
  35. PANTOPRAZOLE [Suspect]
     Active Substance: PANTOPRAZOLE
     Dosage: UNK
     Dates: start: 201207, end: 2014
  36. DICLAC [Suspect]
     Active Substance: DICLOFENAC
     Dosage: UNK
     Dates: start: 201203, end: 2012
  37. GASTRONERTON [METOCLOPRAMIDE HYDROCHLORIDE] [Suspect]
     Active Substance: METOCLOPRAMIDE HYDROCHLORIDE
     Dosage: UNK
     Dates: start: 201306, end: 2013

REACTIONS (1)
  - Papillary renal cell carcinoma [Unknown]

NARRATIVE: CASE EVENT DATE: 201705
